FAERS Safety Report 6358945-1 (Version None)
Quarter: 2009Q3

REPORT INFORMATION
  Report Type: 
  Country: None (occurrence: None)
  Receive Date: 20090914
  Receipt Date: 20090902
  Transmission Date: 20100115
  Serious: Yes (Hospitalization)
  Sender: FDA-Public Use
  Company Number: GXKR2009KR09857

PATIENT
  Age: 69 Year
  Sex: Male

DRUGS (3)
  1. CARBOPLATIN [Suspect]
     Indication: LUNG SQUAMOUS CELL CARCINOMA STAGE UNSPECIFIED
     Dosage: AUC (5) X (CREATINE CLEARANCE +25) MG/DAY, DAY 1
  2. GEMCITABINE [Concomitant]
  3. ONDANSETRON [Concomitant]

REACTIONS (7)
  - ASTHENIA [None]
  - BLOOD CHLORIDE DECREASED [None]
  - BLOOD PRESSURE INCREASED [None]
  - BREATH SOUNDS ABNORMAL [None]
  - DEPRESSED LEVEL OF CONSCIOUSNESS [None]
  - FLUID INTAKE RESTRICTION [None]
  - INAPPROPRIATE ANTIDIURETIC HORMONE SECRETION [None]
